FAERS Safety Report 9972340 (Version 3)
Quarter: 2014Q1

REPORT INFORMATION
  Report Type: Spontaneous
  Country: US (occurrence: US)
  Receive Date: 20140306
  Receipt Date: 20140311
  Transmission Date: 20141002
  Serious: Yes (Other)
  Sender: FDA-Public Use
  Company Number: US-PFIZER INC-2014056987

PATIENT
  Age: 52 Year
  Sex: Male
  Weight: 133.3 kg

DRUGS (3)
  1. ENBREL [Suspect]
     Indication: PSORIATIC ARTHROPATHY
     Dosage: 50 MG, QWK
     Route: 058
     Dates: start: 20140109
  2. IBUPROFEN [Suspect]
     Indication: PSORIATIC ARTHROPATHY
     Dosage: 800 MG, TID
     Route: 048
     Dates: start: 2013
  3. HYZAAR [Suspect]
     Indication: HYPERTENSION
     Dosage: 100-25, QD
     Route: 048
     Dates: start: 2013

REACTIONS (3)
  - Asthma [Unknown]
  - Cough [Not Recovered/Not Resolved]
  - Viral infection [Unknown]
